FAERS Safety Report 4276791-X (Version None)
Quarter: 2004Q1

REPORT INFORMATION
  Report Type: 
  Country: None (occurrence: None)
  Receive Date: 20040120
  Receipt Date: 20040115
  Transmission Date: 20041129
  Serious: Yes (Hospitalization)
  Sender: FDA-Public Use
  Company Number: 200312028GDS

PATIENT
  Age: 43 Year
  Sex: Male

DRUGS (1)
  1. GLUCOR (ACARBOSE) [Suspect]
     Indication: DIABETES MELLITUS NON-INSULIN-DEPENDENT

REACTIONS (9)
  - ACUTE GENERALISED EXANTHEMATOUS PUSTULOSIS [None]
  - HAIRY CELL LEUKAEMIA [None]
  - LYMPHADENOPATHY [None]
  - OEDEMA [None]
  - PARAKERATOSIS [None]
  - PURPURA [None]
  - PYREXIA [None]
  - SPLENOMEGALY [None]
  - THROMBOCYTOPENIA [None]
